FAERS Safety Report 11639122 (Version 2)
Quarter: 2016Q2

REPORT INFORMATION
  Report Type: Report from Study
  Country: CN (occurrence: CN)
  Receive Date: 20151019
  Receipt Date: 20160418
  Transmission Date: 20160815
  Serious: Yes (Other)
  Sender: FDA-Public Use
  Company Number: CN-ROCHE-1646640

PATIENT

DRUGS (1)
  1. CAPECITABINE. [Suspect]
     Active Substance: CAPECITABINE
     Indication: RECTAL CANCER
     Dosage: 5 DAY/WEEK, TOTALLY 5 CYCLES
     Route: 048

REACTIONS (5)
  - Skin toxicity [Unknown]
  - Diarrhoea [Unknown]
  - Anorectal disorder [Unknown]
  - Leukopenia [Unknown]
  - Platelet count decreased [Unknown]
